FAERS Safety Report 19736046 (Version 2)
Quarter: 2022Q1

REPORT INFORMATION
  Report Type: Spontaneous
  Country: US (occurrence: US)
  Receive Date: 20210823
  Receipt Date: 20220105
  Transmission Date: 20220423
  Serious: Yes (Hospitalization, Other)
  Sender: FDA-Public Use
  Company Number: US-ELI_LILLY_AND_COMPANY-US202108008354

PATIENT
  Sex: Female
  Weight: 52.154 kg

DRUGS (7)
  1. TADALAFIL [Interacting]
     Active Substance: TADALAFIL
     Indication: Pulmonary arterial hypertension
     Dosage: UNK UNK, UNKNOWN
  2. TADALAFIL [Interacting]
     Active Substance: TADALAFIL
     Indication: Pulmonary arterial hypertension
  3. REMODULIN [Interacting]
     Active Substance: TREPROSTINIL
     Indication: Pulmonary arterial hypertension
     Dosage: UNK UNK, OTHER (17 NG/KG/MIN, CONTINUOUS)
     Route: 058
     Dates: start: 20210730
  4. REMODULIN [Interacting]
     Active Substance: TREPROSTINIL
     Indication: Pulmonary arterial hypertension
     Dosage: UNK UNK, OTHER (55 NG/KG/M IN, CONTINUOUS)
     Route: 058
  5. WARFARIN [Interacting]
     Active Substance: WARFARIN
     Indication: Product used for unknown indication
     Dosage: UNK UNK, UNKNOWN
     Route: 065
  6. ADEMPAS [Concomitant]
     Active Substance: RIOCIGUAT
     Indication: Product used for unknown indication
  7. AMBRISENTAN [Concomitant]
     Active Substance: AMBRISENTAN
     Indication: Product used for unknown indication

REACTIONS (4)
  - Cerebral haemorrhage [Unknown]
  - Drug interaction [Unknown]
  - Hypotension [Unknown]
  - Headache [Recovering/Resolving]
